FAERS Safety Report 8252589-2 (Version None)
Quarter: 2012Q2

REPORT INFORMATION
  Report Type: 
  Country: None (occurrence: None)
  Receive Date: 20120402
  Receipt Date: 20110601
  Transmission Date: 20120825
  Serious: No
  Sender: FDA-Public Use
  Company Number: US-ABBOTT-11P-163-0804372-00

PATIENT
  Sex: Male
  Weight: 109.09 kg

DRUGS (3)
  1. TESTOSTERONE [Suspect]
     Dosage: DAILY DOSE: 5 GRAM(S), VIA PUMP
     Route: 062
     Dates: start: 20110301
  2. TESTOSTERONE [Suspect]
     Indication: BLOOD TESTOSTERONE DECREASED
     Dosage: DAILY DOSE: 5 GRAM(S), VIA PUMP
     Route: 062
     Dates: start: 20101201, end: 20110101
  3. TESTOSTERONE [Suspect]
     Dosage: DAILY DOSE: 5 GRAM(S), VIA PUMP
     Route: 062
     Dates: start: 20110101, end: 20110301

REACTIONS (2)
  - PRODUCT QUALITY ISSUE [None]
  - APPLICATION SITE SWELLING [None]
